FAERS Safety Report 9033007 (Version 1)
Quarter: 2013Q1

REPORT INFORMATION
  Report Type: Spontaneous
  Country: GB (occurrence: None)
  Receive Date: 20130110
  Receipt Date: 20130110
  Transmission Date: 20140127
  Serious: Yes (Hospitalization, Other)
  Sender: FDA-Public Use
  Company Number: AUR-APL-2013-00034

PATIENT
  Age: 44 Year
  Sex: Male

DRUGS (1)
  1. CIPROFLOXACIN (CIPROFLOXACIN) [Suspect]
     Indication: PRODUCT USED FOR UNKNOWN INDICATION
     Dosage: 1000 MG (500 MG, 2 IN 1 D), ORAL
     Route: 048

REACTIONS (14)
  - Haemolytic uraemic syndrome [None]
  - Thrombotic thrombocytopenic purpura [None]
  - Escherichia test positive [None]
  - Haemofiltration [None]
  - Diarrhoea haemorrhagic [None]
  - Condition aggravated [None]
  - Grand mal convulsion [None]
  - Confusional state [None]
  - Consciousness fluctuating [None]
  - Renal failure acute [None]
  - Neutrophilia [None]
  - Blood fibrinogen increased [None]
  - Ascites [None]
  - Microangiopathic haemolytic anaemia [None]
